FAERS Safety Report 8808715 (Version 1)
Quarter: 2012Q4

REPORT INFORMATION
  Report Type: Spontaneous
  Country: JP (occurrence: None)
  Receive Date: 20120921
  Receipt Date: 20120921
  Transmission Date: 20130627
  Serious: Yes (Other)
  Sender: FDA-Public Use
  Company Number: DSJ-2012-16709

PATIENT
  Age: 64 Year
  Sex: Male

DRUGS (7)
  1. OLMETEC [Suspect]
     Indication: ESSENTIAL HYPERTENSION
     Route: 048
     Dates: start: 20100929, end: 20120827
  2. CALBLOCK [Suspect]
     Dates: start: 20101105, end: 20120826
  3. DIOVAN (VALSARTAN) (VALSARTAN) [Concomitant]
  4. AMLODIN (AMLODIPINE BESILATE) (AMLODIPINE BESILATE) [Concomitant]
  5. RASILEZ (ALISKIREN) (ALISKIREN) [Concomitant]
  6. PLETAAL (CILOSTAZOL) (CILOSTAZOL) [Concomitant]
  7. LIPITOR (ATORVASTATIN CALCIUM) (ATORVASTATIN CALCIUM) [Concomitant]

REACTIONS (1)
  - Hypotension [None]
